FAERS Safety Report 24636128 (Version 2)
Quarter: 2025Q1

REPORT INFORMATION
  Report Type: Spontaneous
  Country: JP (occurrence: JP)
  Receive Date: 20241119
  Receipt Date: 20250321
  Transmission Date: 20250409
  Serious: Yes (Other)
  Sender: RANBAXY
  Company Number: JP-SUN PHARMACEUTICAL INDUSTRIES LTD-2024R1-479116

PATIENT
  Age: 31 Year
  Sex: Female

DRUGS (2)
  1. BISOPROLOL [Suspect]
     Active Substance: BISOPROLOL
     Indication: Duchenne muscular dystrophy
     Route: 065
  2. FLECAINIDE [Suspect]
     Active Substance: FLECAINIDE
     Indication: Duchenne muscular dystrophy
     Route: 065

REACTIONS (3)
  - Bradycardia foetal [Recovering/Resolving]
  - Exposure during pregnancy [Unknown]
  - Live birth [Unknown]
